FAERS Safety Report 17948655 (Version 1)
Quarter: 2020Q2

REPORT INFORMATION
  Report Type: Other
  Country: CA (occurrence: CA)
  Receive Date: 20200626
  Receipt Date: 20200626
  Transmission Date: 20200714
  Serious: Yes (Other)
  Sender: FDA-Public Use
  Company Number: CA-ACCORD-186314

PATIENT

DRUGS (2)
  1. MITOMYCIN. [Suspect]
     Active Substance: MITOMYCIN
     Indication: ANAL SQUAMOUS CELL CARCINOMA
     Route: 042
  2. CAPECITABINE. [Suspect]
     Active Substance: CAPECITABINE
     Indication: ANAL SQUAMOUS CELL CARCINOMA
     Dosage: 2 EVERY 1 DAYS
     Route: 048

REACTIONS (10)
  - Change of bowel habit [Unknown]
  - Radiation skin injury [Unknown]
  - Diarrhoea [Unknown]
  - Vomiting [Unknown]
  - Stomatitis [Unknown]
  - Anal incontinence [Unknown]
  - Erythema [Unknown]
  - Nausea [Unknown]
  - Pain [Unknown]
  - Ulcer [Unknown]
